FAERS Safety Report 4659310-5 (Version None)
Quarter: 2005Q2

REPORT INFORMATION
  Report Type: 
  Country: None (occurrence: None)
  Receive Date: 20050502
  Receipt Date: 20050307
  Transmission Date: 20051028
  Serious: No
  Sender: FDA-Public Use
  Company Number: 200511835US

PATIENT
  Sex: Male

DRUGS (4)
  1. KETEK [Suspect]
     Indication: BRONCHITIS
     Dosage: 400 MG BID PO
     Route: 048
  2. KETEK [Suspect]
     Indication: SINUSITIS
     Dosage: 400 MG BID PO
     Route: 048
  3. BENZONATATE (TESSALON PERLE) [Concomitant]
  4. NIGHTTIME COLD [Concomitant]

REACTIONS (2)
  - FEELING DRUNK [None]
  - VISION BLURRED [None]
